FAERS Safety Report 8494674-6 (Version None)
Quarter: 2012Q3

REPORT INFORMATION
  Report Type: 
  Country: None (occurrence: None)
  Receive Date: 20120709
  Receipt Date: 20120703
  Transmission Date: 20120928
  Serious: Yes (Other)
  Sender: FDA-Public Use
  Company Number: PHHY2012ZA057280

PATIENT
  Sex: Male

DRUGS (2)
  1. TRAMAHEXAL [Suspect]
     Indication: PAIN
     Dosage: 100 MG, QHS
     Route: 048
     Dates: start: 20120702, end: 20120703
  2. KOGENATE [Concomitant]

REACTIONS (1)
  - HAEMORRHAGE [None]
